FAERS Safety Report 21581013 (Version 2)
Quarter: 2023Q1

REPORT INFORMATION
  Report Type: Spontaneous
  Country: JP (occurrence: JP)
  Receive Date: 20221111
  Receipt Date: 20230228
  Transmission Date: 20230417
  Serious: Yes (Other)
  Sender: FDA-Public Use
  Company Number: JP-SA-2022SA458097

PATIENT
  Age: 62 Year
  Sex: Male

DRUGS (1)
  1. DUPIXENT [Suspect]
     Active Substance: DUPILUMAB
     Indication: Dermatitis atopic
     Route: 058

REACTIONS (5)
  - Eosinophilic granulomatosis with polyangiitis [Unknown]
  - Eosinophil count increased [Unknown]
  - Glomerulonephritis [Unknown]
  - Haematuria [Unknown]
  - Musculoskeletal stiffness [Unknown]
